FAERS Safety Report 7769390-6 (Version None)
Quarter: 2011Q3

REPORT INFORMATION
  Report Type: 
  Country: None (occurrence: None)
  Receive Date: 20110922
  Receipt Date: 20110718
  Transmission Date: 20111222
  Serious: No
  Sender: FDA-Public Use
  Company Number: US-ASTRAZENECA-2011SE42577

PATIENT
  Age: 51 Year
  Sex: Female
  Weight: 65.8 kg

DRUGS (3)
  1. SEROQUEL [Suspect]
     Indication: BIPOLAR DISORDER
     Dosage: 300 MG IN THE MORNING AND 900 MG AT NIGHT
     Route: 048
  2. SEROQUEL [Suspect]
     Dosage: 300 MG IN THE MORNING AND 900 MG AT NIGHT
     Route: 048
  3. NEURONTIN [Concomitant]

REACTIONS (8)
  - DRUG DOSE OMISSION [None]
  - DIARRHOEA [None]
  - INSOMNIA [None]
  - WEIGHT DECREASED [None]
  - WEIGHT INCREASED [None]
  - APHAGIA [None]
  - TREMOR [None]
  - INCORRECT DOSE ADMINISTERED [None]
